FAERS Safety Report 18922541 (Version 2)
Quarter: 2021Q1

REPORT INFORMATION
  Report Type: Spontaneous
  Country: US (occurrence: US)
  Receive Date: 20210222
  Receipt Date: 20210309
  Transmission Date: 20210420
  Serious: Yes (Hospitalization)
  Sender: FDA-Public Use
  Company Number: US-GW PHARMA-202102USGW00552

PATIENT

DRUGS (2)
  1. EPIDIOLEX [Suspect]
     Active Substance: CANNABIDIOL
     Dosage: 620 MILLIGRAM, BID
     Route: 048
     Dates: start: 202102
  2. EPIDIOLEX [Suspect]
     Active Substance: CANNABIDIOL
     Indication: PRODUCT USED FOR UNKNOWN INDICATION
     Dosage: 620 MILLIGRAM, BID
     Route: 048
     Dates: end: 20210215

REACTIONS (3)
  - Product prescribing issue [Unknown]
  - Product dose omission issue [Unknown]
  - Seizure [Unknown]

NARRATIVE: CASE EVENT DATE: 20210215
